FAERS Safety Report 8678723 (Version 2)
Quarter: 2013Q4

REPORT INFORMATION
  Report Type: Spontaneous
  Country: CA (occurrence: CA)
  Receive Date: 20120723
  Receipt Date: 20131105
  Transmission Date: 20140711
  Serious: Yes (Disabling)
  Sender: FDA-Public Use
  Company Number: CA-MSD-1207CAN008000

PATIENT
  Age: 46 Year
  Sex: Female
  Weight: 65.8 kg

DRUGS (4)
  1. SAPHRIS [Suspect]
     Indication: BIPOLAR DISORDER
     Dosage: 10 MG, BID
     Route: 060
     Dates: start: 20120616
  2. EPIVAL [Concomitant]
     Indication: PRODUCT USED FOR UNKNOWN INDICATION
     Dosage: 1000 MG, QD
     Route: 048
  3. EFFEXOR [Concomitant]
     Indication: PRODUCT USED FOR UNKNOWN INDICATION
     Dosage: 75 MG, QD
     Route: 048
  4. RIVOTRIL [Concomitant]
     Dosage: 30 MG, QD
     Route: 048

REACTIONS (8)
  - Swollen tongue [Recovered/Resolved]
  - Gingival swelling [Recovered/Resolved]
  - Anxiety [Recovered/Resolved]
  - Irritability [Recovered/Resolved]
  - Psychomotor hyperactivity [Recovered/Resolved]
  - Feeling abnormal [Recovered/Resolved]
  - Vision blurred [Recovered/Resolved]
  - Panic attack [Recovered/Resolved]
